FAERS Safety Report 5339445-4 (Version None)
Quarter: 2007Q2

REPORT INFORMATION
  Report Type: 
  Country: None (occurrence: None)
  Receive Date: 20070404
  Receipt Date: 20061016
  Transmission Date: 20071010
  Serious: Yes (Other)
  Sender: FDA-Public Use
  Company Number: 2006066582

PATIENT
  Sex: Female

DRUGS (1)
  1. GEODON [Suspect]
     Indication: SCHIZOPHRENIA
     Dosage: 180 MG, ORAL
     Route: 048

REACTIONS (2)
  - MEDICATION ERROR [None]
  - PSYCHOTIC DISORDER [None]
